FAERS Safety Report 6826008-4 (Version None)
Quarter: 2010Q3

REPORT INFORMATION
  Report Type: 
  Country: None (occurrence: None)
  Receive Date: 20100707
  Receipt Date: 20100707
  Transmission Date: 20110219
  Serious: Yes (Disabling)
  Sender: FDA-Public Use
  Company Number: None

PATIENT
  Sex: Female
  Weight: 53.0709 kg

DRUGS (7)
  1. TOBRAMYCIN [Suspect]
     Indication: EYELID DISORDER
     Dosage: 1 DROP BOTH EYES TWICE DAILY
     Dates: start: 20100412, end: 20100421
  2. TOBRAMYCIN [Suspect]
     Indication: POSTOPERATIVE CARE
     Dosage: 1 DROP BOTH EYES TWICE DAILY
     Dates: start: 20100412, end: 20100421
  3. NEXIUM [Concomitant]
  4. FEXOFENADINE [Concomitant]
  5. ASTELIN [Concomitant]
  6. CRESTOR [Concomitant]
  7. VIVELLE DOT PATCH [Concomitant]

REACTIONS (5)
  - LACRIMATION INCREASED [None]
  - PHOTOPHOBIA [None]
  - VISION BLURRED [None]
  - VISUAL ACUITY REDUCED [None]
  - VISUAL IMPAIRMENT [None]
